FAERS Safety Report 8345926-1 (Version None)
Quarter: 2012Q2

REPORT INFORMATION
  Report Type: 
  Country: None (occurrence: None)
  Receive Date: 20120507
  Receipt Date: 20120417
  Transmission Date: 20120825
  Serious: Yes (Death, Other)
  Sender: FDA-Public Use
  Company Number: 2012P1018206

PATIENT
  Age: 76 Year
  Sex: Female

DRUGS (10)
  1. CEFTAZIDIME [Suspect]
     Dosage: 1 GM;TID
     Dates: start: 20111218, end: 20111221
  2. FUROSEMIDE [Suspect]
     Dosage: 1 GM; QID; IV
     Route: 042
     Dates: start: 20111208, end: 20111218
  3. CLAFORAN [Concomitant]
  4. HEPARIN [Concomitant]
  5. NICARDIPINE HCL [Concomitant]
  6. AMIKACIN SULFATE [Suspect]
     Dosage: 1 GM;BID;IV
     Route: 042
     Dates: start: 20111219, end: 20111220
  7. FOSFOMYCIN [Concomitant]
  8. HEMOFILTRATION [Concomitant]
  9. LEVETIRACETAM [Suspect]
     Dosage: 500 MG; BID; IV
     Route: 042
     Dates: start: 20111020, end: 20111221
  10. PAROXETINE HCL [Suspect]
     Dosage: 20 MG
     Dates: start: 20111206, end: 20111221

REACTIONS (13)
  - COMA [None]
  - PNEUMONIA ASPIRATION [None]
  - TOXIC SKIN ERUPTION [None]
  - HYPOTENSION [None]
  - RESPIRATORY DISTRESS [None]
  - HYDROCEPHALUS [None]
  - NERVOUS SYSTEM DISORDER [None]
  - PERIPHERAL ISCHAEMIA [None]
  - MENINGITIS BACTERIAL [None]
  - KLEBSIELLA TEST POSITIVE [None]
  - SEPTIC SHOCK [None]
  - RENAL FAILURE ACUTE [None]
  - HAEMODIALYSIS [None]
